FAERS Safety Report 8801671 (Version 3)
Quarter: 2012Q4

REPORT INFORMATION
  Report Type: Report from Study
  Country: MX (occurrence: MX)
  Receive Date: 20120921
  Receipt Date: 20121203
  Transmission Date: 20130627
  Serious: Yes (Death)
  Sender: FDA-Public Use
  Company Number: MX-UCBSA-066292

PATIENT
  Age: 67 Year
  Sex: Male
  Weight: 83 kg

DRUGS (8)
  1. NEUPRO [Suspect]
     Indication: PARKINSON^S DISEASE
     Route: 062
     Dates: start: 20110627, end: 20111004
  2. NEUPRO [Suspect]
     Indication: PARKINSON^S DISEASE
     Route: 062
     Dates: start: 20111005, end: 20120312
  3. LEVODOPA/CARBIDOPA [Suspect]
     Indication: PARKINSON^S DISEASE
     Dosage: SINGLE DOSE-250/25 MG
     Dates: start: 1995, end: 20120829
  4. CLONAZEPAM [Suspect]
     Indication: PARKINSON^S DISEASE
     Dates: start: 20071210, end: 20120829
  5. PRAMIPEXOLE [Suspect]
     Indication: PARKINSON^S DISEASE
     Dates: start: 20081228, end: 20090821
  6. PRAMIPEXOLE [Suspect]
     Indication: PARKINSON^S DISEASE
     Dates: start: 20110502, end: 20110627
  7. PRAMIPEXOLE [Suspect]
     Indication: PARKINSON^S DISEASE
     Dates: start: 20120312, end: 20120829
  8. BUPROPION [Concomitant]
     Indication: DEPRESSION
     Dates: start: 20120826, end: 20120829

REACTIONS (1)
  - Pneumonia [Fatal]
